FAERS Safety Report 7705701-5 (Version None)
Quarter: 2011Q3

REPORT INFORMATION
  Report Type: 
  Country: None (occurrence: None)
  Receive Date: 20110824
  Receipt Date: 20110404
  Transmission Date: 20111222
  Serious: No
  Sender: FDA-Public Use
  Company Number: US-MYLANLABS-2011S1007122

PATIENT
  Age: 89 Year
  Sex: Male

DRUGS (10)
  1. ASPIRIN [Concomitant]
  2. PENTOXIFYLLINE [Suspect]
     Indication: INTERMITTENT CLAUDICATION
     Route: 048
     Dates: start: 20110201, end: 20110317
  3. TRIAMTERENE AND HYDROCHLOROTHIAZIDE [Concomitant]
  4. EYE DROPS [Concomitant]
  5. MULTI-VITAMIN [Concomitant]
  6. METOPROLOL [Concomitant]
  7. SIMAVASTATIN [Concomitant]
  8. GABAPENTIN [Concomitant]
  9. LUTEIN /01638501/ [Concomitant]
  10. OMEPRAZOLE [Concomitant]

REACTIONS (2)
  - SENSATION OF HEAVINESS [None]
  - PAIN IN EXTREMITY [None]
